FAERS Safety Report 9248652 (Version 5)
Quarter: 2015Q2

REPORT INFORMATION
  Report Type: Spontaneous
  Country: US (occurrence: US)
  Receive Date: 20130423
  Receipt Date: 20150422
  Transmission Date: 20150821
  Serious: Yes (Disabling, Other)
  Sender: FDA-Public Use
  Company Number: US-009507513-1304USA010134

PATIENT
  Sex: Male

DRUGS (1)
  1. PROPECIA [Suspect]
     Active Substance: FINASTERIDE
     Indication: ALOPECIA
     Dosage: 1 MG, UNK
     Route: 048
     Dates: start: 20010308, end: 201205

REACTIONS (24)
  - Suicidal ideation [Not Recovered/Not Resolved]
  - Loss of libido [Unknown]
  - Anxiety [Not Recovered/Not Resolved]
  - Brain injury [Unknown]
  - Genital hypoaesthesia [Unknown]
  - Penile size reduced [Unknown]
  - Sexual dysfunction [Not Recovered/Not Resolved]
  - Ejaculation disorder [Unknown]
  - Dermatitis contact [Unknown]
  - Depression [Not Recovered/Not Resolved]
  - Penis injury [Unknown]
  - Hormone level abnormal [Unknown]
  - Groin pain [Unknown]
  - Pain in extremity [Unknown]
  - Sensory disturbance [Unknown]
  - Tinea pedis [Unknown]
  - Erectile dysfunction [Unknown]
  - Testicular pain [Unknown]
  - Hypoaesthesia [Unknown]
  - Painful ejaculation [Unknown]
  - Marital problem [Not Recovered/Not Resolved]
  - Testicular atrophy [Unknown]
  - Cognitive disorder [Not Recovered/Not Resolved]
  - Sexual dysfunction [Unknown]

NARRATIVE: CASE EVENT DATE: 20010521
